FAERS Safety Report 6622305-6 (Version None)
Quarter: 2010Q1

REPORT INFORMATION
  Report Type: 
  Country: None (occurrence: None)
  Receive Date: 20100305
  Receipt Date: 20100224
  Transmission Date: 20100710
  Serious: Yes (Other)
  Sender: FDA-Public Use
  Company Number: 20108341

PATIENT
  Sex: Male

DRUGS (2)
  1. LIORESAL [Suspect]
     Indication: MUSCLE SPASTICITY
     Dosage: MCG, DAILY, INTRATHECAL
     Route: 037
  2. COUMADIN [Concomitant]

REACTIONS (3)
  - IMPLANT SITE HAEMATOMA [None]
  - IMPLANT SITE INFECTION [None]
  - INTERNATIONAL NORMALISED RATIO INCREASED [None]
